FAERS Safety Report 9693952 (Version 1)
Quarter: 2013Q4

REPORT INFORMATION
  Report Type: Spontaneous
  Country: JP (occurrence: JP)
  Receive Date: 20131118
  Receipt Date: 20131118
  Transmission Date: 20140711
  Serious: Yes (Other)
  Sender: FDA-Public Use
  Company Number: JP-PFIZER INC-2013328579

PATIENT
  Sex: Female

DRUGS (2)
  1. JZOLOFT [Suspect]
     Dosage: 100 MG, DAILY
     Route: 048
  2. HALCION [Suspect]
     Dosage: UNK
     Route: 048

REACTIONS (5)
  - Altered state of consciousness [Unknown]
  - Tremor [Unknown]
  - Asthenia [Unknown]
  - Somnolence [Unknown]
  - Dizziness [Unknown]
